FAERS Safety Report 6755943-0 (Version None)
Quarter: 2010Q2

REPORT INFORMATION
  Report Type: 
  Country: None (occurrence: None)
  Receive Date: 20100604
  Receipt Date: 20100526
  Transmission Date: 20101027
  Serious: Yes (Hospitalization)
  Sender: FDA-Public Use
  Company Number: FR-ASTRAZENECA-2010SE24293

PATIENT
  Age: 89 Year
  Sex: Male

DRUGS (7)
  1. MOPRAL [Suspect]
     Route: 048
     Dates: start: 20091226, end: 20100112
  2. COUMADIN [Suspect]
     Route: 048
     Dates: start: 20091226, end: 20100112
  3. CORDARONE [Suspect]
     Route: 048
     Dates: start: 20091226, end: 20100112
  4. SERESTA [Suspect]
     Route: 048
     Dates: start: 20091226, end: 20100112
  5. ASPEGIC 1000 [Suspect]
     Route: 048
     Dates: start: 20091226, end: 20100112
  6. HYDROCORTISONE [Concomitant]
  7. DECAPEPTYL [Concomitant]

REACTIONS (1)
  - CYTOLYTIC HEPATITIS [None]
